FAERS Safety Report 19001119 (Version 1)
Quarter: 2021Q1

REPORT INFORMATION
  Report Type: Report from Study
  Country: None (occurrence: US)
  Receive Date: 20210311
  Receipt Date: 20210311
  Transmission Date: 20210420
  Serious: Yes (Hospitalization, Other)
  Sender: FDA-Public Use
  Company Number: US-ABBVIE-21K-163-3805142-00

PATIENT
  Sex: Female

DRUGS (1)
  1. HUMIRA [Suspect]
     Active Substance: ADALIMUMAB
     Indication: RHEUMATOID ARTHRITIS
     Route: 058
     Dates: end: 2021

REACTIONS (13)
  - Loss of consciousness [Unknown]
  - Full blood count decreased [Unknown]
  - Fall [Unknown]
  - Urinary bladder haemorrhage [Unknown]
  - Urinary bladder haemorrhage [Recovered/Resolved]
  - Bladder cyst [Unknown]
  - Dehydration [Unknown]
  - Musculoskeletal disorder [Unknown]
  - Asthenia [Unknown]
  - Hypotension [Not Recovered/Not Resolved]
  - Infection [Unknown]
  - Bladder pain [Not Recovered/Not Resolved]
  - Formication [Unknown]

NARRATIVE: CASE EVENT DATE: 2018
